FAERS Safety Report 11592401 (Version 1)
Quarter: 2015Q4

REPORT INFORMATION
  Report Type: Spontaneous
  Country: US (occurrence: US)
  Receive Date: 20151005
  Receipt Date: 20151005
  Transmission Date: 20160304
  Serious: No
  Sender: FDA-Public Use
  Company Number: US-ELI_LILLY_AND_COMPANY-US201005005674

PATIENT
  Sex: Male

DRUGS (5)
  1. CIALIS [Suspect]
     Active Substance: TADALAFIL
     Dosage: 20 MG, PRN
     Route: 065
  2. SIMVASTATIN. [Concomitant]
     Active Substance: SIMVASTATIN
     Dosage: UNK, UNKNOWN
     Route: 065
  3. CIALIS [Suspect]
     Active Substance: TADALAFIL
     Indication: ERECTILE DYSFUNCTION
     Dosage: 5 MG, QD
     Route: 065
     Dates: start: 2014
  4. TESTOSTERONE. [Concomitant]
     Active Substance: TESTOSTERONE
     Dosage: UNK UNK, WEEKLY (1/W)
     Route: 065
  5. CIALIS [Suspect]
     Active Substance: TADALAFIL
     Indication: DIABETES MELLITUS
     Dosage: 10 MG, UNK

REACTIONS (3)
  - Prostatic specific antigen increased [Unknown]
  - Off label use [Unknown]
  - Drug ineffective [Unknown]
